FAERS Safety Report 14041412 (Version 1)
Quarter: 2017Q4

REPORT INFORMATION
  Report Type: Spontaneous
  Country: JP (occurrence: JP)
  Receive Date: 20171004
  Receipt Date: 20171004
  Transmission Date: 20180321
  Serious: Yes (Other)
  Sender: FDA-Public Use
  Company Number: PHHY2017JP142897

PATIENT
  Age: 47 Year
  Sex: Female

DRUGS (2)
  1. PACLITAXEL. [Suspect]
     Active Substance: PACLITAXEL
     Indication: METASTASES TO BONE
     Dosage: 90 MG/M2, CYCLIC
     Route: 065
  2. BEVACIZUMAB. [Concomitant]
     Active Substance: BEVACIZUMAB
     Indication: METASTASES TO BONE
     Dosage: 10 MG/KG, CYCLIC
     Route: 065

REACTIONS (4)
  - Retinal thickening [Recovered/Resolved]
  - Therapy partial responder [Unknown]
  - Vision blurred [Recovered/Resolved]
  - Cystoid macular oedema [Recovered/Resolved]
